FAERS Safety Report 7403474-7 (Version None)
Quarter: 2011Q2

REPORT INFORMATION
  Report Type: 
  Country: None (occurrence: None)
  Receive Date: 20110408
  Receipt Date: 20110330
  Transmission Date: 20111010
  Serious: Yes (Disabling, Other)
  Sender: FDA-Public Use
  Company Number: B0711494A

PATIENT
  Age: 60 Year
  Sex: Male
  Weight: 57.7 kg

DRUGS (7)
  1. ALBUTEROL [Concomitant]
     Route: 055
  2. SALMETEROL + FLUTICASONE [Suspect]
     Indication: BRONCHIECTASIS
     Dosage: 2PUFF TWICE PER DAY
     Route: 055
     Dates: start: 20030201
  3. RITONAVIR [Suspect]
     Indication: HIV INFECTION
     Route: 065
     Dates: start: 20000201
  4. FLUTICASONE [Suspect]
     Indication: BRONCHIECTASIS
     Dosage: 50MCG PER DAY
     Route: 055
  5. ATAZANAVIR [Concomitant]
     Route: 065
  6. TENOFOVIR [Concomitant]
     Route: 065
  7. COMBIVIR [Concomitant]
     Route: 065

REACTIONS (10)
  - EROSIVE OESOPHAGITIS [None]
  - ADRENAL SUPPRESSION [None]
  - DRUG INTERACTION [None]
  - OSTEOPOROSIS [None]
  - FEMUR FRACTURE [None]
  - RALES [None]
  - SPINAL COMPRESSION FRACTURE [None]
  - FATIGUE [None]
  - OSTEONECROSIS [None]
  - ORTHOSTATIC HYPOTENSION [None]
